FAERS Safety Report 8381129-2 (Version None)
Quarter: 2012Q2

REPORT INFORMATION
  Report Type: 
  Country: None (occurrence: None)
  Receive Date: 20120523
  Receipt Date: 20120511
  Transmission Date: 20120825
  Serious: Yes (Other)
  Sender: FDA-Public Use
  Company Number: US-ELI_LILLY_AND_COMPANY-US201205004544

PATIENT
  Sex: Male

DRUGS (8)
  1. SIMVASTATIN [Concomitant]
  2. MULTIVITAMIN [Concomitant]
  3. EFFIENT [Suspect]
     Indication: STENT PLACEMENT
     Dosage: 10 MG, QD
     Dates: start: 20120408
  4. ASPIRIN [Concomitant]
     Dosage: 325 MG, UNK
  5. LISINOPRIL [Concomitant]
  6. METOPROLOL [Concomitant]
  7. VITAMIN D [Concomitant]
  8. IRON [Concomitant]

REACTIONS (1)
  - STENT PLACEMENT [None]
